FAERS Safety Report 24593591 (Version 1)
Quarter: 2024Q4

REPORT INFORMATION
  Report Type: Spontaneous
  Country: US (occurrence: None)
  Receive Date: 20241108
  Receipt Date: 20241108
  Transmission Date: 20250114
  Serious: Yes (Hospitalization)
  Sender: Public
  Company Number: None

PATIENT
  Age: 28 Month
  Sex: Female
  Weight: 18.5 kg

DRUGS (5)
  1. CALASPARGASE PEGOL-MKNL [Suspect]
     Active Substance: CALASPARGASE PEGOL-MKNL
     Dates: end: 20240608
  2. CYTARABINE [Suspect]
     Active Substance: CYTARABINE
     Dates: end: 20240604
  3. DEXAMETHASONE [Suspect]
     Active Substance: DEXAMETHASONE
     Dates: end: 20241026
  4. METHOTREXATE [Suspect]
     Active Substance: METHOTREXATE
     Dates: end: 20240603
  5. VINCRISTINE SULFATE [Suspect]
     Active Substance: VINCRISTINE SULFATE
     Dates: end: 20240626

REACTIONS (21)
  - Candida infection [None]
  - Fatigue [None]
  - Malaise [None]
  - Rash [None]
  - Klebsiella infection [None]
  - Biopsy skin abnormal [None]
  - Fungal infection [None]
  - Kidney infection [None]
  - Endocarditis [None]
  - Nonspecific reaction [None]
  - Blood pressure increased [None]
  - Therapy non-responder [None]
  - Spinal cord haematoma [None]
  - Spinal cord abscess [None]
  - Culture positive [None]
  - Extradural abscess [None]
  - Veillonella test positive [None]
  - Incision site erythema [None]
  - Device malfunction [None]
  - Sepsis [None]
  - Splenic infection [None]

NARRATIVE: CASE EVENT DATE: 20240619
